FAERS Safety Report 8535109-4 (Version None)
Quarter: 2012Q3

REPORT INFORMATION
  Report Type: 
  Country: None (occurrence: None)
  Receive Date: 20120724
  Receipt Date: 20120718
  Transmission Date: 20120928
  Serious: Yes (Other)
  Sender: FDA-Public Use
  Company Number: US-PFIZER INC-2012174171

PATIENT
  Sex: Female

DRUGS (2)
  1. PREMARIN [Suspect]
     Indication: MENOPAUSAL SYMPTOMS
     Dosage: UNK
     Dates: start: 19890101
  2. PREMARIN [Suspect]
     Indication: HOT FLUSH

REACTIONS (2)
  - BLOOD VISCOSITY INCREASED [None]
  - TRANSIENT ISCHAEMIC ATTACK [None]
